FAERS Safety Report 8226345-5 (Version None)
Quarter: 2012Q1

REPORT INFORMATION
  Report Type: 
  Country: None (occurrence: None)
  Receive Date: 20120321
  Receipt Date: 20120313
  Transmission Date: 20120608
  Serious: Yes (Other)
  Sender: FDA-Public Use
  Company Number: DE-RB-038277-12

PATIENT
  Sex: Female

DRUGS (1)
  1. BUPRENORPHINE HYDROCHLORIDE [Suspect]
     Indication: ARTHRALGIA
     Dosage: 1-2 TABLETS DAILY
     Route: 065
     Dates: start: 20110101

REACTIONS (1)
  - HEPATIC CIRRHOSIS [None]
